FAERS Safety Report 7383711-8 (Version None)
Quarter: 2011Q1

REPORT INFORMATION
  Report Type: 
  Country: None (occurrence: None)
  Receive Date: 20110328
  Receipt Date: 20110328
  Transmission Date: 20110831
  Serious: Yes (Other)
  Sender: FDA-Public Use
  Company Number: None

PATIENT
  Sex: Female
  Weight: 78.0187 kg

DRUGS (1)
  1. TRIAMTERENE AND HYDROCHLOROTHIAZIDE [Suspect]
     Indication: HYPERTENSION
     Dosage: 1 CAPSULE 1 TIME A DAY PO
     Route: 048
     Dates: start: 20110313, end: 20110324

REACTIONS (10)
  - DIARRHOEA [None]
  - DIZZINESS [None]
  - ABDOMINAL PAIN UPPER [None]
  - PRODUCT SUBSTITUTION ISSUE [None]
  - DRY EYE [None]
  - HEADACHE [None]
  - RESTLESSNESS [None]
  - INSOMNIA [None]
  - FATIGUE [None]
  - DEPRESSION [None]
